FAERS Safety Report 9200312 (Version 1)
Quarter: 2013Q1

REPORT INFORMATION
  Report Type: Spontaneous
  Country: FR (occurrence: FR)
  Receive Date: 20130329
  Receipt Date: 20130329
  Transmission Date: 20140127
  Serious: Yes (Other)
  Sender: FDA-Public Use
  Company Number: FR-ABBOTT-13P-056-1070140-00

PATIENT
  Age: 62 Year
  Sex: Female

DRUGS (6)
  1. CYCLOSPORINE [Suspect]
     Indication: EOSINOPHILIC FASCIITIS
     Route: 048
  2. CYCLOSPORINE [Suspect]
     Indication: APLASTIC ANAEMIA
  3. PREDNISONE [Suspect]
     Indication: EOSINOPHILIC FASCIITIS
     Route: 048
  4. PREDNISONE [Suspect]
     Indication: APLASTIC ANAEMIA
  5. DANAZOL [Suspect]
     Indication: EOSINOPHILIC FASCIITIS
  6. DANAZOL [Suspect]
     Indication: APLASTIC ANAEMIA

REACTIONS (3)
  - Aplastic anaemia [Unknown]
  - Refractory cytopenia with unilineage dysplasia [Unknown]
  - Thrombocytopenia [Unknown]
